FAERS Safety Report 6611532-X (Version None)
Quarter: 2010Q1

REPORT INFORMATION
  Report Type: 
  Country: None (occurrence: None)
  Receive Date: 20100226
  Receipt Date: 20100226
  Transmission Date: 20100710
  Serious: Yes (Disabling, Other)
  Sender: FDA-Public Use
  Company Number: None

PATIENT
  Age: 7 Year
  Sex: Male
  Weight: 24.0406 kg

DRUGS (2)
  1. DEXAMETHASONE [Suspect]
     Indication: CROUP INFECTIOUS
     Dosage: 10MG QD PO
     Route: 048
     Dates: start: 20100219, end: 20100223
  2. DEXAMETHASONE [Suspect]
     Indication: URTICARIA
     Dosage: 10MG QD PO
     Route: 048
     Dates: start: 20100219, end: 20100223

REACTIONS (10)
  - ADRENAL DISORDER [None]
  - AGITATION [None]
  - DISORIENTATION [None]
  - HEADACHE [None]
  - HUNGER [None]
  - INCORRECT DOSE ADMINISTERED [None]
  - LIP SWELLING [None]
  - PSYCHOMOTOR HYPERACTIVITY [None]
  - SWOLLEN TONGUE [None]
  - VOMITING [None]
